FAERS Safety Report 15417909 (Version 7)
Quarter: 2019Q2

REPORT INFORMATION
  Report Type: Spontaneous
  Country: US (occurrence: US)
  Receive Date: 20180924
  Receipt Date: 20190502
  Transmission Date: 20190711
  Serious: No
  Sender: FDA-Public Use
  Company Number: PHEH2018US039592

PATIENT
  Sex: Female

DRUGS (2)
  1. TASIGNA [Suspect]
     Active Substance: NILOTINIB
     Indication: CHRONIC MYELOID LEUKAEMIA
     Dosage: 300 MG, BID
     Route: 048
     Dates: start: 20180731
  2. TASIGNA [Suspect]
     Active Substance: NILOTINIB
     Dosage: 300 MG, QID
     Route: 054
     Dates: start: 201807

REACTIONS (20)
  - Sputum discoloured [Unknown]
  - Muscle spasms [Unknown]
  - Incorrect dose administered [Unknown]
  - Pruritus [Unknown]
  - Hyperhidrosis [Unknown]
  - Sinusitis [Unknown]
  - White blood cell count increased [Unknown]
  - Urticaria [Unknown]
  - Chills [Unknown]
  - Cough [Unknown]
  - Bronchitis [Unknown]
  - Blood potassium decreased [Unknown]
  - Oropharyngeal pain [Unknown]
  - Nasopharyngitis [Unknown]
  - Feeling hot [Unknown]
  - Breast tenderness [Unknown]
  - Fungal infection [Unknown]
  - Rhinorrhoea [Unknown]
  - Rash [Unknown]
  - Influenza [Unknown]
